FAERS Safety Report 24330084 (Version 2)
Quarter: 2024Q4

REPORT INFORMATION
  Report Type: Report from Study
  Country: US (occurrence: US)
  Receive Date: 20240917
  Receipt Date: 20241023
  Transmission Date: 20250115
  Serious: Yes (Hospitalization, Other)
  Sender: ALEXION PHARMACEUTICALS
  Company Number: 2024A208773

PATIENT
  Weight: 64.682 kg

DRUGS (6)
  1. WAINUA [Suspect]
     Active Substance: EPLONTERSEN
     Dosage: 45 MILLIGRAM, UNK, FREQUENCY: Q4WK
  2. WAINUA [Suspect]
     Active Substance: EPLONTERSEN
     Dosage: 45 MILLIGRAM, UNK, FREQUENCY: Q4WK
  3. WAINUA [Suspect]
     Active Substance: EPLONTERSEN
     Dosage: 45 MILLIGRAM, UNK, FREQUENCY: Q4WK
  4. WAINUA [Suspect]
     Active Substance: EPLONTERSEN
     Dosage: 45 MILLIGRAM, UNK, FREQUENCY: Q4WK
  5. AMVUTTRA [Suspect]
     Active Substance: VUTRISIRAN
  6. AMVUTTRA [Suspect]
     Active Substance: VUTRISIRAN
     Route: 065

REACTIONS (22)
  - Abdominal pain upper [Unknown]
  - Vomiting [Unknown]
  - Urinary tract infection [Unknown]
  - Renal necrosis [Unknown]
  - Polyneuropathy [Unknown]
  - Cerebral infarction [Unknown]
  - Dizziness [Unknown]
  - Memory impairment [Unknown]
  - Mobility decreased [Unknown]
  - Depression [Unknown]
  - Body mass index abnormal [Unknown]
  - Hypoaesthesia [Unknown]
  - Paraesthesia [Unknown]
  - Balance disorder [Unknown]
  - Face injury [Unknown]
  - Gastrointestinal disorder [Unknown]
  - Pruritus [Unknown]
  - Abdominal distension [Unknown]
  - Euphoric mood [Unknown]
  - Pain in extremity [Unknown]
  - Cyst [Unknown]
  - Liver disorder [Unknown]
